FAERS Safety Report 19780128 (Version 3)
Quarter: 2021Q3

REPORT INFORMATION
  Report Type: Spontaneous
  Country: US (occurrence: US)
  Receive Date: 20210902
  Receipt Date: 20210921
  Transmission Date: 20211014
  Serious: Yes (Hospitalization, Other)
  Sender: FDA-Public Use
  Company Number: US-PFIZER INC-202101086212

PATIENT
  Age: 47 Year
  Sex: Female
  Weight: 58.97 kg

DRUGS (4)
  1. PAXIL [Concomitant]
     Active Substance: PAROXETINE HYDROCHLORIDE
     Indication: DEPRESSION
     Dosage: UNK
  2. ALDACTONE [Suspect]
     Active Substance: SPIRONOLACTONE
     Indication: ACNE CYSTIC
     Dosage: 100 MG, 1X/DAY
     Route: 048
     Dates: start: 20210731, end: 20210804
  3. LEVOTHYROXINE. [Concomitant]
     Active Substance: LEVOTHYROXINE
     Indication: THYROID DISORDER
     Dosage: UNK
  4. PAXIL [Concomitant]
     Active Substance: PAROXETINE HYDROCHLORIDE
     Indication: POST-TRAUMATIC STRESS DISORDER

REACTIONS (24)
  - Anxiety [Recovered/Resolved]
  - Irritability [Unknown]
  - Burning sensation [Unknown]
  - Hypersensitivity [Unknown]
  - Asthenia [Recovered/Resolved]
  - Headache [Unknown]
  - Anger [Unknown]
  - Fatigue [Unknown]
  - Photophobia [Unknown]
  - Product use in unapproved indication [Unknown]
  - Panic attack [Recovered/Resolved]
  - Pain [Unknown]
  - Condition aggravated [Not Recovered/Not Resolved]
  - Agitation [Unknown]
  - Cardiac disorder [Unknown]
  - Gait inability [Unknown]
  - Dizziness [Recovered/Resolved]
  - Pruritus [Unknown]
  - Loss of consciousness [Recovered/Resolved]
  - Rash [Unknown]
  - Dry skin [Unknown]
  - Lung disorder [Unknown]
  - Illness [Unknown]
  - Nervousness [Unknown]

NARRATIVE: CASE EVENT DATE: 20210731
